FAERS Safety Report 4694202-7 (Version None)
Quarter: 2005Q2

REPORT INFORMATION
  Report Type: 
  Country: None (occurrence: None)
  Receive Date: 20050615
  Receipt Date: 20050615
  Transmission Date: 20051028
  Serious: No
  Sender: FDA-Public Use
  Company Number: None

PATIENT
  Age: 58 Year
  Sex: Female
  Weight: 56.246 kg

DRUGS (5)
  1. CARDIZEM CD [Suspect]
     Indication: HYPERTENSION
     Dosage: ONE DAILY
  2. SYNTHROID [Concomitant]
  3. AZMACORT [Concomitant]
  4. NEXIUM [Concomitant]
  5. VAGIFEM [Concomitant]

REACTIONS (10)
  - ASTHENIA [None]
  - BLOOD PRESSURE FLUCTUATION [None]
  - DECREASED ACTIVITY [None]
  - DIZZINESS [None]
  - FATIGUE [None]
  - FEELING ABNORMAL [None]
  - HEADACHE [None]
  - MALAISE [None]
  - NAUSEA [None]
  - PHARMACEUTICAL PRODUCT COMPLAINT [None]
